FAERS Safety Report 9119678 (Version 3)
Quarter: 2013Q2

REPORT INFORMATION
  Report Type: Spontaneous
  Country: JP (occurrence: JP)
  Receive Date: 20130226
  Receipt Date: 20130604
  Transmission Date: 20140414
  Serious: Yes (Other)
  Sender: FDA-Public Use
  Company Number: PHHY2013JP015569

PATIENT
  Age: 74 Year
  Sex: Female

DRUGS (2)
  1. NILOTINIB [Suspect]
     Indication: CHRONIC MYELOID LEUKAEMIA
     Dosage: 600 MG, DAILY
     Route: 048
     Dates: start: 20120328, end: 20120425
  2. NILOTINIB [Suspect]
     Dosage: 400 MG, DAILY
     Route: 048
     Dates: start: 20120512

REACTIONS (2)
  - Insulin C-peptide decreased [Not Recovered/Not Resolved]
  - Hepatic function abnormal [Recovering/Resolving]
